FAERS Safety Report 10873641 (Version 2)
Quarter: 2015Q1

REPORT INFORMATION
  Report Type: Spontaneous
  Country: ZA (occurrence: ZA)
  Receive Date: 20150227
  Receipt Date: 20150305
  Transmission Date: 20150721
  Serious: Yes (Other)
  Sender: FDA-Public Use
  Company Number: ZA-009507513-1502ZAF004768

PATIENT
  Age: 69 Year
  Sex: Female
  Weight: 72 kg

DRUGS (3)
  1. TREPILINE [Concomitant]
     Active Substance: AMITRIPTYLINE
     Dosage: 1 DF, QD
     Route: 048
     Dates: start: 2005
  2. BISOPROLOL FUMARATE HYDROCHLOROTHIAZIDE [Concomitant]
     Active Substance: BISOPROLOL FUMARATE\HYDROCHLOROTHIAZIDE
     Dosage: 1 DF, QD
     Route: 048
     Dates: start: 2005
  3. INEGY [Suspect]
     Active Substance: EZETIMIBE\SIMVASTATIN
     Dosage: 1 DF, QD
     Route: 048
     Dates: start: 20140329, end: 20150215

REACTIONS (2)
  - Anal pruritus [Not Recovered/Not Resolved]
  - Anorectal discomfort [Not Recovered/Not Resolved]

NARRATIVE: CASE EVENT DATE: 201501
